FAERS Safety Report 16837898 (Version 1)
Quarter: 2019Q3

REPORT INFORMATION
  Report Type: Other
  Country: AU (occurrence: AU)
  Receive Date: 20190923
  Receipt Date: 20190923
  Transmission Date: 20191005
  Serious: Yes (Other)
  Sender: FDA-Public Use
  Company Number: AU-EMCURE PHARMACEUTICALS LTD-2019-EPL-0657

PATIENT
  Age: 62 Year
  Sex: Female

DRUGS (2)
  1. CIDOFOVIR. [Suspect]
     Active Substance: CIDOFOVIR
     Indication: ANTIVIRAL TREATMENT
     Dosage: UNK
  2. GANCICLOVIR. [Suspect]
     Active Substance: GANCICLOVIR
     Indication: ANTIVIRAL TREATMENT
     Dosage: UNK

REACTIONS (1)
  - Drug resistance [Unknown]
